FAERS Safety Report 9250685 (Version 2)
Quarter: 2013Q2

REPORT INFORMATION
  Report Type: Spontaneous
  Country: US (occurrence: US)
  Receive Date: 20130424
  Receipt Date: 20130528
  Transmission Date: 20140414
  Serious: No
  Sender: FDA-Public Use
  Company Number: US-009507513-1304USA007933

PATIENT
  Age: 56 Year
  Sex: Female
  Weight: 110.66 kg

DRUGS (2)
  1. PRINIVIL [Suspect]
     Indication: HYPERTENSION
     Dosage: 20 MG, QD
     Route: 048
     Dates: start: 20130313, end: 20130412
  2. ADDERALL TABLETS [Concomitant]

REACTIONS (1)
  - Cough [Recovered/Resolved]
